FAERS Safety Report 5012910-5 (Version None)
Quarter: 2006Q2

REPORT INFORMATION
  Report Type: 
  Country: None (occurrence: None)
  Receive Date: 20060525
  Receipt Date: 20060525
  Transmission Date: 20061013
  Serious: No
  Sender: FDA-Public Use
  Company Number: None

PATIENT
  Age: 61 Year
  Sex: Male

DRUGS (1)
  1. CILOSTAZOL [Suspect]
     Indication: ATRIAL FIBRILLATION
     Dosage: 100MG QD PO
     Route: 048
     Dates: start: 20050922, end: 20060322

REACTIONS (3)
  - PRURITUS [None]
  - RASH [None]
  - URTICARIA [None]
